FAERS Safety Report 5711750-9 (Version None)
Quarter: 2008Q2

REPORT INFORMATION
  Report Type: 
  Country: None (occurrence: None)
  Receive Date: 20080421
  Receipt Date: 20080409
  Transmission Date: 20081010
  Serious: Yes (Life-Threatening, Other)
  Sender: FDA-Public Use
  Company Number: SI-PFIZER INC-2008021557

PATIENT
  Sex: Male

DRUGS (3)
  1. LYRICA [Suspect]
     Indication: NEURALGIA
     Route: 048
     Dates: start: 20070901, end: 20070901
  2. LOSARTAN POTASSIUM [Concomitant]
  3. INDAPAMIDE [Concomitant]

REACTIONS (5)
  - HEART RATE DECREASED [None]
  - HYPOAESTHESIA ORAL [None]
  - HYPOTENSION [None]
  - PAIN [None]
  - TRANSIENT ISCHAEMIC ATTACK [None]
